FAERS Safety Report 20883782 (Version 1)
Quarter: 2022Q2

REPORT INFORMATION
  Report Type: Spontaneous
  Country: CN (occurrence: CN)
  Receive Date: 20220527
  Receipt Date: 20220527
  Transmission Date: 20220721
  Serious: Yes (Life-Threatening)
  Sender: FDA-Public Use
  Company Number: CN-BRACCO-2022CN02000

PATIENT
  Age: 75 Year
  Sex: Male

DRUGS (1)
  1. IOPAMIDOL [Suspect]
     Active Substance: IOPAMIDOL
     Indication: Computerised tomogram head
     Dosage: 100 ML, SINGLE
     Route: 042
     Dates: start: 20220519, end: 20220519

REACTIONS (2)
  - Restlessness [Unknown]
  - Rash [Unknown]

NARRATIVE: CASE EVENT DATE: 20220519
